FAERS Safety Report 8300091-1 (Version None)
Quarter: 2012Q2

REPORT INFORMATION
  Report Type: 
  Country: None (occurrence: None)
  Receive Date: 20120420
  Receipt Date: 20120417
  Transmission Date: 20120825
  Serious: No
  Sender: FDA-Public Use
  Company Number: US-PFIZER INC-2012096134

PATIENT
  Age: 82 Year
  Sex: Female

DRUGS (3)
  1. SYNTHROID [Suspect]
     Indication: THYROID DISORDER
     Dosage: UNK
  2. LYRICA [Suspect]
     Indication: BACK DISORDER
     Dosage: 75 MG, UNK
     Route: 048
  3. FUROSEMIDE [Suspect]
     Indication: FLUID RETENTION
     Dosage: UNK

REACTIONS (2)
  - DRUG DISPENSING ERROR [None]
  - ANXIETY [None]
